FAERS Safety Report 11374388 (Version 2)
Quarter: 2015Q3

REPORT INFORMATION
  Report Type: Spontaneous
  Country: JP (occurrence: JP)
  Receive Date: 20150813
  Receipt Date: 20150910
  Transmission Date: 20151125
  Serious: Yes (Other)
  Sender: FDA-Public Use
  Company Number: JP-ROCHE-1620672

PATIENT
  Sex: Male

DRUGS (1)
  1. AVASTIN [Suspect]
     Active Substance: BEVACIZUMAB
     Indication: NON-SMALL CELL LUNG CANCER
     Route: 041
     Dates: start: 20150623, end: 20150804

REACTIONS (3)
  - Haemorrhage urinary tract [Unknown]
  - Haematuria [Recovered/Resolved]
  - Ureteric obstruction [Unknown]

NARRATIVE: CASE EVENT DATE: 20150804
